FAERS Safety Report 8455974-9 (Version None)
Quarter: 2012Q2

REPORT INFORMATION
  Report Type: 
  Country: None (occurrence: None)
  Receive Date: 20120621
  Receipt Date: 20120614
  Transmission Date: 20120825
  Serious: Yes (Hospitalization)
  Sender: FDA-Public Use
  Company Number: NL-ROCHE-1064235

PATIENT
  Sex: Female
  Weight: 65 kg

DRUGS (9)
  1. SINGULAIR [Concomitant]
  2. VENTOLIN [Concomitant]
  3. PREDNISONE TAB [Concomitant]
  4. SPIRIVA [Concomitant]
  5. ZANTAC [Concomitant]
  6. FLUTICASONE PROPIONATE/SALMETEROL [Concomitant]
  7. FEXOFENADINE HCL [Concomitant]
  8. XOLAIR [Suspect]
     Indication: ASTHMA
     Route: 058
     Dates: start: 20120317
  9. SALMETEROL [Concomitant]

REACTIONS (1)
  - RASH [None]
